FAERS Safety Report 23821735 (Version 3)
Quarter: 2024Q4

REPORT INFORMATION
  Report Type: Report from Study
  Country: JP (occurrence: JP)
  Receive Date: 20240506
  Receipt Date: 20241025
  Transmission Date: 20250115
  Serious: Yes (Hospitalization)
  Sender: EISAI
  Company Number: JP-Eisai-202401231_LEN-EC_P_1

PATIENT
  Age: 75 Year
  Sex: Female
  Weight: 40 kg

DRUGS (6)
  1. LENVIMA [Suspect]
     Active Substance: LENVATINIB
     Indication: Endometrial cancer recurrent
     Route: 048
     Dates: start: 20230823, end: 20230905
  2. LENVIMA [Suspect]
     Active Substance: LENVATINIB
     Route: 048
     Dates: start: 20230906
  3. KEYTRUDA [Concomitant]
     Active Substance: PEMBROLIZUMAB
     Indication: Endometrial cancer recurrent
     Dosage: KEYTRUDA WAS SUSPENDED DUE TO ILEUS.
     Route: 042
     Dates: start: 20230823
  4. KEYTRUDA [Concomitant]
     Active Substance: PEMBROLIZUMAB
     Dosage: KEYTRUDA WAS SUSPENDED DUE TO A CHANGE IN THE VISIT DATE DUE TO PATIENT^S CONVENIENCE.
     Route: 042
     Dates: start: 20231218
  5. KEYTRUDA [Concomitant]
     Active Substance: PEMBROLIZUMAB
     Dosage: KEYTRUDA WAS SUSPENDED DUE TO A CHANGE IN THE VISIT DATE DUE TO HER CONVENIENCE.
     Route: 042
     Dates: start: 20240115
  6. KEYTRUDA [Concomitant]
     Active Substance: PEMBROLIZUMAB
     Route: 042
     Dates: start: 20240828

REACTIONS (1)
  - Enterocolitis [Recovering/Resolving]

NARRATIVE: CASE EVENT DATE: 20230903
